FAERS Safety Report 8107170 (Version 5)
Quarter: 2013Q4

REPORT INFORMATION
  Report Type: Report from Study
  Country: US (occurrence: US)
  Receive Date: 20110825
  Receipt Date: 20131014
  Transmission Date: 20140711
  Serious: Yes (Death, Hospitalization, Other)
  Sender: FDA-Public Use
  Company Number: US-ELI_LILLY_AND_COMPANY-US201103003149

PATIENT
  Age: 75 Year
  Sex: Female
  Weight: 67.57 kg

DRUGS (20)
  1. TERIPARATIDE [Suspect]
     Indication: OSTEOPOROSIS
     Dosage: 20 UG, QD
     Route: 065
     Dates: start: 20110308
  2. TERIPARATIDE [Suspect]
     Indication: SENILE OSTEOPOROSIS
     Dosage: 20 UG, QD
     Route: 065
  3. TERIPARATIDE [Suspect]
     Dosage: 20 UG, QD
     Route: 065
  4. WARFARIN [Concomitant]
  5. LOVASTATIN [Concomitant]
  6. CITALOPRAM [Concomitant]
     Dosage: 40 MG, UNKNOWN
  7. PREDNISONE [Concomitant]
     Dosage: 10 MG, UNKNOWN
  8. PREDNISONE [Concomitant]
     Dosage: 100 MG, UNKNOWN
  9. IMURAN [Concomitant]
     Dosage: 25 MG, UNKNOWN
  10. CALCIUM [Concomitant]
  11. PERCOCET [Concomitant]
  12. PLAQUENIL [Concomitant]
     Dosage: 200 MG, UNKNOWN
  13. MULTIVITAMIN [Concomitant]
  14. ASTHMADEX [Concomitant]
  15. PEPCID [Concomitant]
  16. CARVEDILOL [Concomitant]
     Dosage: 6.2 MG, UNKNOWN
  17. LOSARTAN [Concomitant]
     Dosage: 25 MG, UNKNOWN
  18. OMEPRAZOLE [Concomitant]
     Dosage: 25 MG, BID
  19. CHEMOTHERAPEUTICS [Concomitant]
  20. IRON [Concomitant]

REACTIONS (11)
  - Non-Hodgkin^s lymphoma [Fatal]
  - Colitis [Recovered/Resolved]
  - Kidney infection [Recovered/Resolved]
  - Blood pressure decreased [Unknown]
  - Oxygen consumption decreased [Unknown]
  - Pneumonia [Unknown]
  - Hypersensitivity [Unknown]
  - Nasopharyngitis [Unknown]
  - Dizziness [Unknown]
  - Headache [Recovered/Resolved]
  - White blood cell count decreased [Unknown]
